FAERS Safety Report 9970143 (Version 1)
Quarter: 2014Q1

REPORT INFORMATION
  Report Type: Report from Study
  Country: US (occurrence: US)
  Receive Date: 20140306
  Receipt Date: 20140306
  Transmission Date: 20141002
  Serious: Yes (Hospitalization, Other)
  Sender: FDA-Public Use
  Company Number: PHEH2014US003866

PATIENT
  Age: 73 Year
  Sex: Female
  Weight: 57.3 kg

DRUGS (3)
  1. AFINITOR [Suspect]
     Indication: BREAST CANCER METASTATIC
     Dosage: 10 MG, QD
     Route: 048
     Dates: start: 201307
  2. EXEMESTANE [Concomitant]
     Dosage: 25 MG, UNK
     Route: 048
     Dates: start: 201307
  3. XGEVA [Concomitant]
     Dosage: 120 MG
     Route: 058
     Dates: start: 201307

REACTIONS (7)
  - Pain [Unknown]
  - Fall [Unknown]
  - Leukopenia [Recovering/Resolving]
  - Blood potassium decreased [Unknown]
  - Blood creatinine increased [Unknown]
  - Urinary tract infection [Unknown]
  - Rib fracture [Unknown]
